FAERS Safety Report 15574183 (Version 1)
Quarter: 2018Q4

REPORT INFORMATION
  Report Type: Spontaneous
  Country: US (occurrence: US)
  Receive Date: 20181026
  Receipt Date: 20181026
  Transmission Date: 20190205
  Serious: Yes (Hospitalization)
  Sender: FDA-Public Use
  Company Number: None

PATIENT
  Age: 23 Year
  Sex: Female
  Weight: 58.97 kg

DRUGS (1)
  1. CYPROHEPTADINE LYSINE AND VITAMINS SYRUP - APETAMIN [Suspect]
     Active Substance: CYPROHEPTADINE HYDROCHLORIDE\LYSINE HYDROCHLORIDE\VITAMINS
     Indication: DRUG THERAPY
     Route: 048
     Dates: start: 20180813, end: 20180827

REACTIONS (6)
  - Angina pectoris [None]
  - Insomnia [None]
  - Drug dependence [None]
  - Vomiting [None]
  - Food aversion [None]
  - Intentional product misuse [None]

NARRATIVE: CASE EVENT DATE: 20180828
